FAERS Safety Report 4933255-5 (Version None)
Quarter: 2006Q1

REPORT INFORMATION
  Report Type: 
  Country: None (occurrence: None)
  Receive Date: 20060306
  Receipt Date: 20051031
  Transmission Date: 20060701
  Serious: Yes (Hospitalization, Other)
  Sender: FDA-Public Use
  Company Number: US-MERCK-0511USA00313

PATIENT
  Age: 58 Year
  Sex: Male
  Weight: 73 kg

DRUGS (6)
  1. VIOXX [Suspect]
     Indication: RHEUMATOID ARTHRITIS
     Route: 048
     Dates: start: 20000501, end: 20040930
  2. ASPIRIN [Concomitant]
     Route: 065
     Dates: start: 19650101
  3. INSULIN [Concomitant]
     Route: 065
  4. VASOTEC RPD [Concomitant]
     Route: 065
     Dates: start: 20021001
  5. CALAN [Concomitant]
     Route: 065
     Dates: start: 20000501, end: 20040101
  6. VIAGRA [Concomitant]
     Route: 065

REACTIONS (7)
  - CARDIAC FAILURE CONGESTIVE [None]
  - CEREBROVASCULAR ACCIDENT [None]
  - CHOLECYSTECTOMY [None]
  - DIALYSIS [None]
  - HAEMATOCHEZIA [None]
  - MYOCARDIAL INFARCTION [None]
  - RENAL FAILURE [None]
